FAERS Safety Report 25101172 (Version 1)
Quarter: 2025Q1

REPORT INFORMATION
  Report Type: Spontaneous
  Country: US (occurrence: US)
  Receive Date: 20250320
  Receipt Date: 20250320
  Transmission Date: 20250408
  Serious: No
  Sender: CIPLA
  Company Number: US-CIPLA LTD.-2024US09242

PATIENT

DRUGS (15)
  1. TESTOSTERONE [Suspect]
     Active Substance: TESTOSTERONE
     Indication: Hypogonadism
     Route: 061
  2. TESTOSTERONE [Suspect]
     Active Substance: TESTOSTERONE
     Route: 061
     Dates: start: 202407, end: 20240807
  3. TESTOSTERONE [Suspect]
     Active Substance: TESTOSTERONE
     Route: 061
     Dates: start: 202408
  4. CANDESARTAN CILEXETIL [Concomitant]
     Active Substance: CANDESARTAN CILEXETIL
     Indication: Hypertension
     Dosage: 60 MILLIGRAM, QD (WITH BREAKFAST) (SINCE SEVERAL YEARS)
     Route: 048
  5. CHOLECALCIFEROL [Concomitant]
     Active Substance: CHOLECALCIFEROL
     Indication: Cold type haemolytic anaemia
     Dosage: 50 MILLIGRAM, BID (MORE THAN 2 OR 3 YEARS) (DOCTOR WAS CAREFULLY MONITORING HIS INTAKE OF VITAMIN D
     Route: 048
  6. CHOLECALCIFEROL [Concomitant]
     Active Substance: CHOLECALCIFEROL
     Route: 048
  7. SACCHAROMYCES CEREVISIAE [Concomitant]
     Active Substance: SACCHAROMYCES CEREVISIAE
     Indication: Dyspepsia
     Dosage: 50 MG, QD (MORE THAN 2 OR 3 YEARS) (ONCE A DAY IN THE MORNING)
     Route: 048
  8. SACCHAROMYCES CEREVISIAE [Concomitant]
     Active Substance: SACCHAROMYCES CEREVISIAE
     Route: 048
     Dates: start: 2023
  9. GLUCOSAMINE SULFATE [Concomitant]
     Active Substance: GLUCOSAMINE SULFATE
     Indication: Arthralgia
     Dosage: 680 MILLIGRAM, QD (IN THE MORNING) (MORE THAN 2 OR 3 YEARS)
     Route: 048
  10. METOPROLOL SUCCINATE [Concomitant]
     Active Substance: METOPROLOL SUCCINATE
     Indication: Hypertension
     Dosage: 50 MILLIGRAM, QD (AT EVENING) (MORE THAN 2 OR 3 YEARS)
     Route: 048
  11. LORATADINE [Concomitant]
     Active Substance: LORATADINE
     Indication: Seasonal allergy
     Dosage: 10 MILLIGRAM, QD (AT EVENING)
     Route: 048
     Dates: start: 2024, end: 2024
  12. LORATADINE [Concomitant]
     Active Substance: LORATADINE
     Dosage: 10 MILLIGRAM, QD (AT EVENING) (BEGAN TAKING APR-2024 / MAY-2024, STOPPED IN WINTER AGAIN STARTED)
     Route: 048
     Dates: start: 2024
  13. TAMSULOSIN [Concomitant]
     Active Substance: TAMSULOSIN
     Indication: Prostatomegaly
     Dosage: 0.4 MILLIGRAM, QD (EVENING)
     Route: 048
     Dates: start: 202404
  14. FOLIC ACID [Concomitant]
     Active Substance: FOLIC ACID
     Indication: Cold type haemolytic anaemia
     Dosage: 800 MICROGRAM, QD (AT EVENING) (MORE THAN 2 OR 3YEARS)
     Route: 048
  15. ZINC [Concomitant]
     Active Substance: ZINC
     Indication: Cold type haemolytic anaemia
     Dosage: 50 MILLIGRAM, QD (AT EVENING) (MORE THAN 2 OR 3 YEARS)
     Route: 048

REACTIONS (3)
  - Drug ineffective [Unknown]
  - Incorrect dose administered [Unknown]
  - Product quality issue [Unknown]

NARRATIVE: CASE EVENT DATE: 20240101
